FAERS Safety Report 8808470 (Version 2)
Quarter: 2013Q1

REPORT INFORMATION
  Report Type: Spontaneous
  Country: US (occurrence: US)
  Receive Date: 20120926
  Receipt Date: 20130326
  Transmission Date: 20140127
  Serious: Yes (Hospitalization, Other)
  Sender: FDA-Public Use
  Company Number: US-BAYER-2012-099959

PATIENT
  Age: 53 Year
  Sex: Female
  Weight: 90.7 kg

DRUGS (15)
  1. YAZ [Suspect]
     Indication: MENOPAUSE
  2. LASIX [Concomitant]
  3. NITROGLYCERIN [Concomitant]
  4. DONNATAL [Concomitant]
  5. NEXIUM [Concomitant]
  6. PRAVACHOL [Concomitant]
  7. LORTAB [Concomitant]
  8. OXYCONTIN [Concomitant]
  9. ANTIPROPULSIVES [Concomitant]
  10. SKELAXIN [Concomitant]
  11. PHENERGAN [Concomitant]
  12. AXERT [Concomitant]
  13. VISTARIL [Concomitant]
  14. ZOLOFT [Concomitant]
  15. LYRICA [Concomitant]

REACTIONS (10)
  - Intracranial venous sinus thrombosis [None]
  - Jugular vein thrombosis [None]
  - Cardiac valve disease [None]
  - Pulmonary valve disease [None]
  - Diastolic dysfunction [None]
  - Petit mal epilepsy [None]
  - Dysgraphia [None]
  - Chest pain [None]
  - Headache [None]
  - Off label use [None]
